FAERS Safety Report 16417100 (Version 1)
Quarter: 2019Q2

REPORT INFORMATION
  Report Type: Spontaneous
  Country: AR (occurrence: AR)
  Receive Date: 20190611
  Receipt Date: 20190611
  Transmission Date: 20190711
  Serious: Yes (Other)
  Sender: FDA-Public Use
  Company Number: AR-UCBSA-2019023707

PATIENT
  Age: 42 Year
  Sex: Female
  Weight: 82 kg

DRUGS (1)
  1. CIMZIA [Suspect]
     Active Substance: CERTOLIZUMAB PEGOL
     Indication: RHEUMATOID ARTHRITIS
     Dosage: 400 MILLIGRAM, EV 4 WEEKS
     Route: 058
     Dates: start: 20170601, end: 201901

REACTIONS (1)
  - Hepatic steatosis [Recovered/Resolved]

NARRATIVE: CASE EVENT DATE: 201810
